FAERS Safety Report 6359187-6 (Version None)
Quarter: 2009Q3

REPORT INFORMATION
  Report Type: 
  Country: None (occurrence: None)
  Receive Date: 20090917
  Receipt Date: 20090916
  Transmission Date: 20100115
  Serious: Yes (Death)
  Sender: FDA-Public Use
  Company Number: IT-WYE-G04447309

PATIENT
  Sex: Male
  Weight: 72 kg

DRUGS (3)
  1. TORISEL [Suspect]
     Dates: start: 20090826, end: 20090826
  2. TORISEL [Suspect]
     Dates: start: 20090902, end: 20090902
  3. EVOLTRA [Suspect]
     Dates: start: 20090826, end: 20090830

REACTIONS (3)
  - ACUTE RESPIRATORY FAILURE [None]
  - BRONCHOPNEUMONIA [None]
  - ESCHERICHIA SEPSIS [None]
